FAERS Safety Report 8498778-3 (Version None)
Quarter: 2012Q3

REPORT INFORMATION
  Report Type: 
  Country: None (occurrence: None)
  Receive Date: 20120709
  Receipt Date: 20120629
  Transmission Date: 20120928
  Serious: No
  Sender: FDA-Public Use
  Company Number: US-AMGEN-USASP2012040506

PATIENT
  Age: 32 Year
  Sex: Female

DRUGS (5)
  1. ENBREL [Suspect]
     Indication: PSORIASIS
  2. ENBREL [Suspect]
     Indication: OSTEOARTHRITIS
  3. ENBREL [Suspect]
     Indication: HYPERTHYROIDISM
  4. ENBREL [Suspect]
     Indication: PSORIATIC ARTHROPATHY
     Dosage: 25 MG, 2 TIMES/WK
     Dates: start: 20041009
  5. ENBREL [Suspect]
     Indication: BASEDOW'S DISEASE

REACTIONS (4)
  - INJECTION SITE HAEMATOMA [None]
  - VOMITING [None]
  - INJECTION SITE HAEMORRHAGE [None]
  - NAUSEA [None]
